FAERS Safety Report 5872680-5 (Version None)
Quarter: 2008Q3

REPORT INFORMATION
  Report Type: 
  Country: None (occurrence: None)
  Receive Date: 20080905
  Receipt Date: 20080827
  Transmission Date: 20090109
  Serious: Yes (Hospitalization)
  Sender: FDA-Public Use
  Company Number: US-PURDUE-USA_2008_0034660

PATIENT
  Age: 63 Year
  Sex: Female

DRUGS (3)
  1. OXYCONTIN [Suspect]
     Indication: PAIN
     Dosage: 10 MG, BID
     Route: 048
     Dates: start: 20080429
  2. HYDROMORPHONE HCL (SIMILAR TO 19-892) [Suspect]
     Indication: DRUG USE FOR UNKNOWN INDICATION
     Dosage: 2 MG, BID
     Route: 048
     Dates: start: 20080415
  3. UNKNOWN INVESTIGATIONAL DRUG [Suspect]
     Indication: BONE SARCOMA
     Dosage: 10 MG/KG, UNK
     Route: 042
     Dates: start: 20080404

REACTIONS (3)
  - CONFUSIONAL STATE [None]
  - HUMERUS FRACTURE [None]
  - OVERDOSE [None]
